FAERS Safety Report 4615740-9 (Version None)
Quarter: 2005Q2

REPORT INFORMATION
  Report Type: 
  Country: None (occurrence: None)
  Receive Date: 20050310
  Receipt Date: 20041115
  Transmission Date: 20051028
  Serious: No
  Sender: FDA-Public Use
  Company Number: A03200403859

PATIENT
  Age: 71 Year
  Sex: Male
  Weight: 87.0906 kg

DRUGS (7)
  1. ELOXATIN [Suspect]
     Indication: COLON CANCER
     Dosage: 250 MG Q2W - INTRAVENOUS NOS
     Route: 042
     Dates: start: 20041110, end: 20041110
  2. ELOXATIN [Suspect]
     Indication: METASTASES TO LUNG
     Dosage: 250 MG Q2W - INTRAVENOUS NOS
     Route: 042
     Dates: start: 20041110, end: 20041110
  3. DOLASETRON MESILATE [Concomitant]
  4. DEXAMETHASONE [Concomitant]
  5. BEVACIZUMAB [Concomitant]
  6. LEUCOVORIN CALCIUM [Concomitant]
  7. FLUOROURACIL [Concomitant]

REACTIONS (3)
  - ABASIA [None]
  - ASTHENIA [None]
  - MUSCLE TWITCHING [None]
